FAERS Safety Report 6102511-X (Version None)
Quarter: 2009Q1

REPORT INFORMATION
  Report Type: 
  Country: None (occurrence: None)
  Receive Date: 20090304
  Receipt Date: 20080710
  Transmission Date: 20090719
  Serious: No
  Sender: FDA-Public Use
  Company Number: A0736942A

PATIENT
  Age: 67 Year
  Sex: Male

DRUGS (7)
  1. REQUIP [Suspect]
     Indication: RESTLESS LEGS SYNDROME
     Dosage: 1MG PER DAY
     Route: 048
     Dates: start: 20080701
  2. GABAPENTIN [Concomitant]
  3. CATAFLAM [Concomitant]
  4. OMEPRAZOLE [Concomitant]
  5. FLEXERIL [Concomitant]
  6. BUSPAR [Concomitant]
  7. ASPIRIN [Concomitant]

REACTIONS (2)
  - DIZZINESS [None]
  - DYSSTASIA [None]
